FAERS Safety Report 24145608 (Version 1)
Quarter: 2024Q3

REPORT INFORMATION
  Report Type: Spontaneous
  Country: PL (occurrence: PL)
  Receive Date: 20240729
  Receipt Date: 20240729
  Transmission Date: 20241017
  Serious: Yes (Other)
  Sender: SANDOZ
  Company Number: PL-002147023-NVSC2024PL148788

PATIENT
  Age: 78 Year
  Sex: Female

DRUGS (8)
  1. BRINZOLAMIDE [Suspect]
     Active Substance: BRINZOLAMIDE
     Indication: Glaucoma
     Dosage: UNK
     Route: 061
  2. CARBOMER [Suspect]
     Active Substance: CARBOMER
     Indication: Dry eye
     Dosage: 980 - 2 MG/G
     Route: 065
  3. CARBOMER [Suspect]
     Active Substance: CARBOMER
     Indication: Prophylaxis
  4. SODIUM HYALURONATE [Suspect]
     Active Substance: HYALURONATE SODIUM
     Indication: Dry eye
     Dosage: 0.25%
     Route: 065
  5. SODIUM HYALURONATE [Suspect]
     Active Substance: HYALURONATE SODIUM
     Indication: Prophylaxis
  6. TIMOLOL [Suspect]
     Active Substance: TIMOLOL
     Indication: Glaucoma
     Dosage: UNK
     Route: 065
  7. TREHALOSE [Suspect]
     Active Substance: TREHALOSE
     Indication: Dry eye
     Dosage: 2.0 %
     Route: 065
  8. TREHALOSE [Suspect]
     Active Substance: TREHALOSE
     Indication: Prophylaxis

REACTIONS (2)
  - Glaucoma [Not Recovered/Not Resolved]
  - Disease progression [Not Recovered/Not Resolved]
